FAERS Safety Report 7996801-3 (Version None)
Quarter: 2011Q4

REPORT INFORMATION
  Report Type: 
  Country: None (occurrence: None)
  Receive Date: 20111221
  Receipt Date: 20111208
  Transmission Date: 20120403
  Serious: Yes (Hospitalization)
  Sender: FDA-Public Use
  Company Number: CA-JNJFOC-20111205296

PATIENT
  Sex: Female
  Weight: 58.5 kg

DRUGS (2)
  1. REMICADE [Suspect]
     Route: 042
     Dates: start: 20111208
  2. REMICADE [Suspect]
     Indication: CROHN'S DISEASE
     Route: 042
     Dates: start: 20100401

REACTIONS (3)
  - ORAL PAIN [None]
  - INFLUENZA [None]
  - DEHYDRATION [None]
